FAERS Safety Report 6681803-X (Version None)
Quarter: 2010Q2

REPORT INFORMATION
  Report Type: 
  Country: None (occurrence: None)
  Receive Date: 20100414
  Receipt Date: 20090828
  Transmission Date: 20101027
  Serious: No
  Sender: FDA-Public Use
  Company Number: US-BAUSCH-2009BL004406

PATIENT
  Age: 60 Year
  Sex: Male

DRUGS (2)
  1. LEVOBUNOLOL HYDROCHLORIDE [Suspect]
     Indication: DRUG USE FOR UNKNOWN INDICATION
     Route: 047
     Dates: start: 20090724, end: 20090828
  2. FLOMAX [Concomitant]
     Indication: DRUG USE FOR UNKNOWN INDICATION

REACTIONS (2)
  - EXOPHTHALMOS [None]
  - EYE SWELLING [None]
